FAERS Safety Report 12635771 (Version 1)
Quarter: 2016Q3

REPORT INFORMATION
  Report Type: Spontaneous
  Country: JP (occurrence: JP)
  Receive Date: 20160809
  Receipt Date: 20160809
  Transmission Date: 20161109
  Serious: No
  Sender: FDA-Public Use
  Company Number: JP-ROCHE-1326414

PATIENT
  Age: 0 Day

DRUGS (1)
  1. TAMIFLU [Suspect]
     Active Substance: OSELTAMIVIR PHOSPHATE
     Indication: INFLUENZA
     Route: 064
     Dates: start: 20110202, end: 20110206

REACTIONS (2)
  - Foetal exposure during pregnancy [Unknown]
  - Congenital naevus [Unknown]

NARRATIVE: CASE EVENT DATE: 20111009
